FAERS Safety Report 17049267 (Version 3)
Quarter: 2020Q1

REPORT INFORMATION
  Report Type: Spontaneous
  Country: US (occurrence: US)
  Receive Date: 20191119
  Receipt Date: 20200106
  Transmission Date: 20200409
  Serious: Yes (Hospitalization)
  Sender: FDA-Public Use
  Company Number: US-OTSUKA-2018_024866

PATIENT
  Sex: Female

DRUGS (2)
  1. ABILIFY [Suspect]
     Active Substance: ARIPIPRAZOLE
     Indication: PSYCHOTIC DISORDER
  2. ABILIFY [Suspect]
     Active Substance: ARIPIPRAZOLE
     Indication: MAJOR DEPRESSION
     Dosage: 10 MG, QD
     Route: 065
     Dates: start: 2012, end: 2017

REACTIONS (12)
  - Eating disorder [Not Recovered/Not Resolved]
  - Economic problem [Unknown]
  - Divorced [Unknown]
  - Condition aggravated [Recovering/Resolving]
  - Homeless [Unknown]
  - Obsessive-compulsive disorder [Unknown]
  - Mental disorder [Unknown]
  - Gambling disorder [Recovering/Resolving]
  - Theft [Not Recovered/Not Resolved]
  - Injury [Unknown]
  - Shoplifting [Not Recovered/Not Resolved]
  - Product use in unapproved indication [Unknown]

NARRATIVE: CASE EVENT DATE: 2012
